FAERS Safety Report 9079800 (Version 1)
Quarter: 2013Q1

REPORT INFORMATION
  Report Type: Spontaneous
  Country: FR (occurrence: FR)
  Receive Date: 20130215
  Receipt Date: 20130215
  Transmission Date: 20140127
  Serious: Yes (Hospitalization)
  Sender: FDA-Public Use
  Company Number: FR-GLAXOSMITHKLINE-B0866497A

PATIENT
  Age: 93 Year
  Sex: Female

DRUGS (6)
  1. ARIXTRA [Suspect]
     Indication: THROMBOSIS PROPHYLAXIS
     Dosage: 7.5MG PER DAY
     Route: 058
     Dates: start: 20121031, end: 20121117
  2. KARDEGIC [Suspect]
     Indication: PRODUCT USED FOR UNKNOWN INDICATION
     Dosage: 75MG PER DAY
     Route: 048
     Dates: end: 20121117
  3. VASTAREL [Concomitant]
     Dosage: 20MG TWICE PER DAY
     Route: 048
  4. SPIRONOLACTONE [Concomitant]
     Dosage: 50MG TWICE PER DAY
     Route: 048
     Dates: end: 20121117
  5. DOLIPRANE [Concomitant]
     Dosage: 1G THREE TIMES PER DAY
     Route: 048
  6. FORLAX [Concomitant]
     Dosage: 10G PER DAY
     Route: 048

REACTIONS (4)
  - Spontaneous haematoma [Recovering/Resolving]
  - Anaemia [Recovered/Resolved]
  - Blood pressure decreased [Unknown]
  - Radial nerve palsy [Unknown]
